FAERS Safety Report 5089613-4 (Version None)
Quarter: 2006Q3

REPORT INFORMATION
  Report Type: 
  Country: None (occurrence: None)
  Receive Date: 20060822
  Receipt Date: 20060809
  Transmission Date: 20061208
  Serious: Yes (Other)
  Sender: FDA-Public Use
  Company Number: 2005115238

PATIENT
  Age: 48 Year
  Sex: Male

DRUGS (8)
  1. BEXTRA [Suspect]
     Indication: ILL-DEFINED DISORDER
  2. ATENOLOL [Concomitant]
  3. ZETIA [Concomitant]
  4. ZOCOR [Concomitant]
  5. OXYCODONE (OXYCODONE) [Concomitant]
  6. ASPIRIN [Concomitant]
  7. NEXIUM [Concomitant]
  8. ALPRAZOLAM [Concomitant]

REACTIONS (4)
  - MYOCARDIAL INFARCTION [None]
  - PAIN IN EXTREMITY [None]
  - PLEURAL EFFUSION [None]
  - PULMONARY EMBOLISM [None]
